FAERS Safety Report 8381175-9 (Version None)
Quarter: 2012Q2

REPORT INFORMATION
  Report Type: 
  Country: None (occurrence: None)
  Receive Date: 20120523
  Receipt Date: 20120517
  Transmission Date: 20120825
  Serious: Yes (Hospitalization, Other)
  Sender: FDA-Public Use
  Company Number: US-ABBOTT-12P-163-0933767-00

PATIENT
  Sex: Male

DRUGS (8)
  1. MERCAPTOPURINE [Concomitant]
     Indication: CROHN'S DISEASE
  2. VITAMIN B-12 [Concomitant]
     Indication: VITAMIN SUPPLEMENTATION
  3. HUMIRA [Suspect]
     Dosage: WEEK 1
     Dates: start: 20120401
  4. HUMIRA [Suspect]
     Indication: CROHN'S DISEASE
     Route: 058
     Dates: start: 20100101, end: 20110101
  5. COLESTID [Concomitant]
     Indication: DIARRHOEA
  6. HUMIRA [Suspect]
     Dosage: WEEK 2
  7. HUMIRA [Suspect]
  8. COLESTID [Concomitant]
     Indication: CROHN'S DISEASE

REACTIONS (8)
  - DYSPNOEA [None]
  - PALPITATIONS [None]
  - DRUG INEFFECTIVE [None]
  - CHEST PAIN [None]
  - PAIN IN EXTREMITY [None]
  - CHEST DISCOMFORT [None]
  - DIZZINESS [None]
  - CONDUCTION DISORDER [None]
